FAERS Safety Report 16000958 (Version 1)
Quarter: 2019Q1

REPORT INFORMATION
  Report Type: Spontaneous
  Country: US (occurrence: US)
  Receive Date: 20190225
  Receipt Date: 20190225
  Transmission Date: 20190418
  Serious: Yes (Life-Threatening, Disabling, Other)
  Sender: FDA-Public Use
  Company Number: US-009507513-98061869

PATIENT
  Age: 60 Year
  Sex: Female

DRUGS (9)
  1. FOSAMAX [Suspect]
     Active Substance: ALENDRONATE SODIUM
     Dosage: UNK
     Route: 048
     Dates: start: 2008, end: 2010
  2. ESTROGEN NOS [Concomitant]
     Active Substance: ESTROGENS
  3. FOSAMAX [Suspect]
     Active Substance: ALENDRONATE SODIUM
     Indication: OSTEOPENIA
     Dosage: UNK
     Route: 048
     Dates: start: 19980101, end: 19980610
  4. BONIVA [Suspect]
     Active Substance: IBANDRONATE SODIUM
     Dosage: UNK, ONCE
  5. FORTEO [Suspect]
     Active Substance: TERIPARATIDE
     Dosage: UNK
  6. RELAFEN [Suspect]
     Active Substance: NABUMETONE
  7. CALCIUM (UNSPECIFIED) [Concomitant]
     Active Substance: CALCIUM
  8. EVISTA [Suspect]
     Active Substance: RALOXIFENE HYDROCHLORIDE
  9. PROLIA [Suspect]
     Active Substance: DENOSUMAB

REACTIONS (13)
  - Alcohol intolerance [Unknown]
  - Abdominal discomfort [Recovered/Resolved]
  - Musculoskeletal pain [Unknown]
  - Oesophageal ulcer [Recovered/Resolved]
  - Gastrointestinal disorder [Unknown]
  - Pain in extremity [Unknown]
  - Asthenia [Recovering/Resolving]
  - Adverse event [Recovered/Resolved]
  - Back disorder [Recovered/Resolved]
  - Gait disturbance [Recovered/Resolved]
  - Pain in extremity [Recovered/Resolved]
  - Bone density decreased [Unknown]
  - Feeling abnormal [Recovered/Resolved]

NARRATIVE: CASE EVENT DATE: 19980121
